FAERS Safety Report 9080399 (Version 1)
Quarter: 2013Q1

REPORT INFORMATION
  Report Type: Spontaneous
  Country: US (occurrence: US)
  Receive Date: 20130218
  Receipt Date: 20130218
  Transmission Date: 20140127
  Serious: Yes (Death)
  Sender: FDA-Public Use
  Company Number: PHEH2013US003952

PATIENT
  Age: 40 Year
  Sex: Male

DRUGS (3)
  1. TOBI [Suspect]
     Indication: CYSTIC FIBROSIS
     Dosage: 1 DF, BID, AS DIRECTED EVERY OTHER MONTH
     Dates: start: 20090912
  2. COLISTIMETHATE [Concomitant]
  3. PULMOZYME [Concomitant]

REACTIONS (1)
  - Death [Fatal]
